FAERS Safety Report 7650064-7 (Version None)
Quarter: 2011Q3

REPORT INFORMATION
  Report Type: 
  Country: None (occurrence: None)
  Receive Date: 20110802
  Receipt Date: 20110802
  Transmission Date: 20111222
  Serious: Yes (Life-Threatening)
  Sender: FDA-Public Use
  Company Number: None

PATIENT
  Age: 44 Year
  Sex: Male
  Weight: 86.182 kg

DRUGS (1)
  1. PRISTIQ [Suspect]
     Indication: MAJOR DEPRESSION
     Dosage: 100MG
     Route: 048

REACTIONS (3)
  - GENERAL PHYSICAL CONDITION ABNORMAL [None]
  - EMOTIONAL DISORDER [None]
  - SUICIDAL IDEATION [None]
